FAERS Safety Report 11387633 (Version 2)
Quarter: 2015Q4

REPORT INFORMATION
  Report Type: Report from Study
  Country: FR (occurrence: FR)
  Receive Date: 20150817
  Receipt Date: 20151120
  Transmission Date: 20160304
  Serious: Yes (Hospitalization)
  Sender: FDA-Public Use
  Company Number: FR-BAXALTA-2015BLT000998

PATIENT
  Age: 6 Year
  Sex: Male
  Weight: 19.9 kg

DRUGS (6)
  1. ADVATE [Suspect]
     Active Substance: ANTIHEMOPHILIC FACTOR, HUMAN RECOMBINANT
     Dosage: 750 IU, 3X A WEEK
     Route: 042
     Dates: start: 20150713, end: 20150713
  2. AMIKACINE [Concomitant]
     Active Substance: AMIKACIN
     Indication: DEVICE RELATED SEPSIS
     Dosage: UNK UNK, 1X A DAY
     Route: 042
     Dates: start: 20150623, end: 20150627
  3. ROCEPHINE [Concomitant]
     Active Substance: CEFTRIAXONE SODIUM
     Indication: DEVICE RELATED SEPSIS
     Dosage: UNK
     Route: 042
     Dates: start: 20150618, end: 20150623
  4. BACTRIM [Concomitant]
     Active Substance: SULFAMETHOXAZOLE\TRIMETHOPRIM
     Indication: DEVICE RELATED SEPSIS
     Dosage: 60 MG, 3X A DAY
     Route: 048
     Dates: start: 20150624, end: 20150703
  5. ADVATE [Suspect]
     Active Substance: ANTIHEMOPHILIC FACTOR, HUMAN RECOMBINANT
     Indication: HAEMORRHAGE PROPHYLAXIS
     Dosage: 750 IU, 3X A WEEK
     Route: 042
     Dates: start: 20150710, end: 20150710
  6. ADVATE [Suspect]
     Active Substance: ANTIHEMOPHILIC FACTOR, HUMAN RECOMBINANT
     Indication: FACTOR VIII DEFICIENCY
     Dosage: 750 IU, 3X A WEEK
     Route: 042
     Dates: start: 20150708, end: 20150708

REACTIONS (1)
  - Device related sepsis [Recovered/Resolved]

NARRATIVE: CASE EVENT DATE: 20150708
